FAERS Safety Report 24693491 (Version 2)
Quarter: 2025Q4

REPORT INFORMATION
  Report Type: Spontaneous
  Country: US (occurrence: None)
  Receive Date: 20241203
  Receipt Date: 20251224
  Transmission Date: 20260117
  Serious: Yes (Life-Threatening, Hospitalization, Other)
  Sender: ORGANON
  Company Number: US-MLMSERVICE-20241121-PI260450-00176

PATIENT
  Age: 73 Year
  Sex: Male

DRUGS (1)
  1. HYDROCHLOROTHIAZIDE\LOSARTAN [Suspect]
     Active Substance: HYDROCHLOROTHIAZIDE\LOSARTAN
     Dosage: 50-12.5 MG 7 MONTHS EARLIER
     Route: 061

REACTIONS (1)
  - Non-cardiogenic pulmonary oedema [Unknown]
